FAERS Safety Report 24906649 (Version 1)
Quarter: 2025Q1

REPORT INFORMATION
  Report Type: Spontaneous
  Country: AU (occurrence: AU)
  Receive Date: 20250130
  Receipt Date: 20250130
  Transmission Date: 20250409
  Serious: Yes (Hospitalization, Other)
  Sender: REGENERON
  Company Number: AU-Medison-000938

PATIENT
  Age: 73 Year
  Sex: Male

DRUGS (1)
  1. LIBTAYO [Suspect]
     Active Substance: CEMIPLIMAB-RWLC
     Indication: Squamous cell carcinoma of skin
     Dates: start: 20220316, end: 20230419

REACTIONS (3)
  - Malignant ascites [Unknown]
  - Adrenal insufficiency [Unknown]
  - Treatment noncompliance [Unknown]
